FAERS Safety Report 20863177 (Version 1)
Quarter: 2022Q2

REPORT INFORMATION
  Report Type: Spontaneous
  Country: US (occurrence: US)
  Receive Date: 20220523
  Receipt Date: 20220523
  Transmission Date: 20220721
  Serious: Yes (Hospitalization, Other)
  Sender: FDA-Public Use
  Company Number: US-TEVA-2022-US-2038631

PATIENT
  Age: 37 Year
  Sex: Female
  Weight: 60 kg

DRUGS (3)
  1. ANASTROZOLE [Suspect]
     Active Substance: ANASTROZOLE
     Dosage: 1 MILLIGRAM
     Route: 065
  2. ZOLADEX [Suspect]
     Active Substance: GOSERELIN ACETATE
     Dosage: 3.6 MILLIGRAM
     Route: 065
  3. EXEMESTANE [Suspect]
     Active Substance: EXEMESTANE
     Route: 065

REACTIONS (16)
  - Soft tissue infection [Unknown]
  - Ocular neoplasm [Unknown]
  - Lymphoma [Unknown]
  - Breast cancer stage IV [Unknown]
  - Metastases to lung [Unknown]
  - Metastases to spine [Unknown]
  - Visual acuity reduced [Not Recovered/Not Resolved]
  - Eye infection [Not Recovered/Not Resolved]
  - Paralysis [Unknown]
  - Myalgia [Unknown]
  - Fine motor skill dysfunction [Unknown]
  - General physical health deterioration [Unknown]
  - Pain [Unknown]
  - Gait inability [Unknown]
  - Mental impairment [Unknown]
  - Loss of personal independence in daily activities [Unknown]

NARRATIVE: CASE EVENT DATE: 20211001
